FAERS Safety Report 4787806-4 (Version None)
Quarter: 2005Q4

REPORT INFORMATION
  Report Type: 
  Country: None (occurrence: None)
  Receive Date: 20051004
  Receipt Date: 20050829
  Transmission Date: 20060501
  Serious: Yes (Hospitalization)
  Sender: FDA-Public Use
  Company Number: CN-MERCK-0508CHN00042

PATIENT
  Age: 73 Year
  Sex: Male

DRUGS (2)
  1. VIOXX [Suspect]
     Indication: INTERVERTEBRAL DISC PROTRUSION
     Route: 048
     Dates: start: 20031024, end: 20031117
  2. [THERAPY UNSPECIFIED] [Concomitant]
     Indication: INTERVERTEBRAL DISC PROTRUSION
     Route: 048

REACTIONS (8)
  - ARTERIAL INSUFFICIENCY [None]
  - ATRIAL FIBRILLATION [None]
  - ATRIAL FLUTTER [None]
  - CORONARY ARTERY DISEASE [None]
  - DIZZINESS [None]
  - EXTRASYSTOLES [None]
  - FALL [None]
  - FRACTURE [None]
